FAERS Safety Report 23349832 (Version 4)
Quarter: 2025Q4

REPORT INFORMATION
  Report Type: Spontaneous
  Country: JP (occurrence: JP)
  Receive Date: 20231229
  Receipt Date: 20251204
  Transmission Date: 20260118
  Serious: Yes (Hospitalization)
  Sender: ALEXION PHARMACEUTICALS
  Company Number: 2023A293169

PATIENT
  Age: 69 Year
  Sex: Female
  Weight: 65 kg

DRUGS (20)
  1. SAPHNELO [Suspect]
     Active Substance: ANIFROLUMAB-FNIA
     Indication: Systemic lupus erythematosus
     Dosage: 300 MILLIGRAM, UNK, FREQUENCY: UNK
     Dates: start: 20220420, end: 20230816
  2. PREDNISOLONE [Suspect]
     Active Substance: PREDNISOLONE
     Dosage: 10 MILLIGRAM, UNK, FREQUENCY: UNK
     Route: 065
  3. PREDNISOLONE [Suspect]
     Active Substance: PREDNISOLONE
     Dosage: NUMBER OF SEPARATE DOSAGES UNKNOWN, FREQUENCY: UNK
     Route: 065
  4. PREDNISOLONE [Suspect]
     Active Substance: PREDNISOLONE
     Dosage: NUMBER OF SEPARATE DOSAGES UNKNOWN, FREQUENCY: UNK
     Route: 065
     Dates: start: 20220615, end: 20220712
  5. PREDNISOLONE [Suspect]
     Active Substance: PREDNISOLONE
     Dosage: NUMBER OF SEPARATE DOSAGES UNKNOWN, FREQUENCY: UNK
     Route: 065
     Dates: start: 20220713, end: 20220906
  6. PREDNISOLONE [Suspect]
     Active Substance: PREDNISOLONE
     Dosage: NUMBER OF SEPARATE DOSAGES UNKNOWN, FREQUENCY: UNK
     Route: 065
     Dates: start: 20220907, end: 20221220
  7. PREDNISOLONE [Suspect]
     Active Substance: PREDNISOLONE
     Dosage: NUMBER OF SEPARATE DOSAGES UNKNOWN, FREQUENCY: UNK
     Route: 065
  8. Apo lansoprazole odt [Concomitant]
     Indication: Gastrooesophageal reflux disease
     Dosage: NUMBER OF SEPARATE DOSAGES UNKNOWN, FREQUENCY: UNK
  9. AMLODIPINE [Concomitant]
     Active Substance: AMLODIPINE BESYLATE
     Indication: Hypertension
     Dosage: NUMBER OF SEPARATE DOSAGES UNKNOWN, FREQUENCY: UNK
  10. AMLODIPINE [Concomitant]
     Active Substance: AMLODIPINE BESYLATE
     Dosage: NUMBER OF SEPARATE DOSAGES UNKNOWN, FREQUENCY: UNK
  11. SULFAMETHOXAZOLE\TRIMETHOPRIM [Concomitant]
     Active Substance: SULFAMETHOXAZOLE\TRIMETHOPRIM
     Indication: Prophylaxis
     Dosage: NUMBER OF SEPARATE DOSAGES UNKNOWN, FREQUENCY: UNK
  12. ALFACALCIDOL [Concomitant]
     Active Substance: ALFACALCIDOL
     Indication: Osteoporosis
     Dosage: NUMBER OF SEPARATE DOSAGES UNKNOWN, FREQUENCY: UNK
  13. MYCOPHENOLATE MOFETIL [Concomitant]
     Active Substance: MYCOPHENOLATE MOFETIL
     Dosage: NUMBER OF SEPARATE DOSAGES UNKNOWN, FREQUENCY: UNK
  14. MYCOPHENOLATE MOFETIL [Concomitant]
     Active Substance: MYCOPHENOLATE MOFETIL
     Dosage: NUMBER OF SEPARATE DOSAGES UNKNOWN, FREQUENCY: UNK
  15. ACETAMINOPHEN\TRAMADOL HYDROCHLORIDE [Concomitant]
     Active Substance: ACETAMINOPHEN\TRAMADOL HYDROCHLORIDE
     Indication: Osteonecrosis
     Dosage: DOSE UNKNOWN
  16. ZOLPIDEM TARTRATE [Concomitant]
     Active Substance: ZOLPIDEM TARTRATE
     Indication: Insomnia
     Dosage: NUMBER OF SEPARATE DOSAGES UNKNOWN, FREQUENCY: UNK
  17. AZULENE [Concomitant]
     Active Substance: AZULENE
     Indication: Stomatitis
     Dosage: DOSE UNKNOWN, FREQUENCY: UNK
  18. MIRABEGRON [Concomitant]
     Active Substance: MIRABEGRON
     Indication: Hypertonic bladder
     Dosage: NUMBER OF SEPARATE DOSAGES UNKNOWN, FREQUENCY: UNK
  19. MIRABEGRON [Concomitant]
     Active Substance: MIRABEGRON
     Dosage: NUMBER OF SEPARATE DOSAGES UNKNOWN, FREQUENCY: UNK
  20. SENNOSIDES [Concomitant]
     Active Substance: SENNOSIDES
     Indication: Constipation
     Dosage: NUMBER OF SEPARATE DOSAGES UNKNOWN, FREQUENCY: UNK

REACTIONS (5)
  - Postoperative wound infection [Recovered/Resolved]
  - Fall [Unknown]
  - Contusion [Unknown]
  - Intervertebral disc protrusion [Unknown]
  - Platelet count decreased [Unknown]

NARRATIVE: CASE EVENT DATE: 20230921
